FAERS Safety Report 9239562 (Version 1)
Quarter: 2013Q2

REPORT INFORMATION
  Report Type: Spontaneous
  Country: US (occurrence: US)
  Receive Date: 20130418
  Receipt Date: 20130418
  Transmission Date: 20140414
  Serious: No
  Sender: FDA-Public Use
  Company Number: US-SANOFI-AVENTIS-2012SA032946

PATIENT
  Sex: Male

DRUGS (3)
  1. LOVENOX [Suspect]
     Route: 065
     Dates: start: 2011, end: 20120509
  2. HORMONES AND RELATED AGENTS [Concomitant]
     Dates: end: 201201
  3. LUPRON [Concomitant]
     Dates: end: 201201

REACTIONS (2)
  - Oedema peripheral [Not Recovered/Not Resolved]
  - Erythema [Not Recovered/Not Resolved]
